FAERS Safety Report 4511447-7 (Version None)
Quarter: 2004Q4

REPORT INFORMATION
  Report Type: 
  Country: None (occurrence: None)
  Receive Date: 20041129
  Receipt Date: 20040813
  Transmission Date: 20050328
  Serious: No
  Sender: FDA-Public Use
  Company Number: US-BRISTOL-MYERS SQUIBB COMPANY-12671343

PATIENT
  Age: 51 Year
  Sex: Male
  Weight: 62 kg

DRUGS (4)
  1. ABILIFY [Suspect]
     Indication: AUTISM
     Route: 048
     Dates: start: 20040708
  2. ABILIFY [Suspect]
     Indication: ABNORMAL BEHAVIOUR
     Route: 048
     Dates: start: 20040708
  3. THORAZINE [Concomitant]
     Indication: GASTROOESOPHAGEAL REFLUX DISEASE
     Dates: start: 20020301
  4. MULTI-VITAMIN [Concomitant]

REACTIONS (1)
  - HEAD BANGING [None]
